FAERS Safety Report 16017387 (Version 2)
Quarter: 2019Q2

REPORT INFORMATION
  Report Type: Spontaneous
  Country: US (occurrence: US)
  Receive Date: 20190228
  Receipt Date: 20190416
  Transmission Date: 20190711
  Serious: No
  Sender: FDA-Public Use
  Company Number: US-TEVA-2019-US-1007807

PATIENT
  Age: 74 Year
  Sex: Female
  Weight: 76 kg

DRUGS (13)
  1. TAMULOSIN [Concomitant]
     Active Substance: TAMSULOSIN
     Dosage: MORNING
  2. CEPHALEXIN. [Concomitant]
     Active Substance: CEPHALEXIN
     Dosage: EVERY THIRD DAY: MORNING
  3. EZETIMIBE. [Concomitant]
     Active Substance: EZETIMIBE
     Dosage: GENERIC EQUIV. OF ZETIA: NIGHT TIME
  4. VITAMIN D3 [Concomitant]
     Active Substance: CHOLECALCIFEROL
     Dosage: 5000 IU* 2: NIGHT TIME
  5. COPAXONE [Suspect]
     Active Substance: GLATIRAMER ACETATE
     Indication: MULTIPLE SCLEROSIS
     Dosage: FORM STRENGTH UNKNOWN
     Dates: start: 2007
  6. LOSARTAN POTASSIUM. [Concomitant]
     Active Substance: LOSARTAN POTASSIUM
     Dosage: MORNING
  7. ROSUVASTATIN. [Concomitant]
     Active Substance: ROSUVASTATIN
     Dosage: GENERIC EQUIV. OF CRESTOR: NIGHT TIME
  8. PRILOSEC [Concomitant]
     Active Substance: OMEPRAZOLE MAGNESIUM
     Dosage: NIGHT TIME
  9. PAROXETINE HCL [Concomitant]
     Active Substance: PAROXETINE HYDROCHLORIDE
     Dosage: GENERIC EQUIV. OF PAXIL: NIGHT TIME
  10. GELNIQUE GEL [Concomitant]
     Dosage: FORM STRENGTH: 10 PERCENT 2 PKG: MORNING
  11. LEVOTHYROXINE. [Concomitant]
     Active Substance: LEVOTHYROXINE
     Dosage: MORNING
  12. AMPYRA [Concomitant]
     Active Substance: DALFAMPRIDINE
     Indication: MULTIPLE SCLEROSIS
     Dosage: MORNING
  13. COATED ASPIRIN [Concomitant]
     Active Substance: ASPIRIN
     Dosage: MORNING

REACTIONS (8)
  - Injection site urticaria [Recovered/Resolved]
  - Injection site inflammation [Not Recovered/Not Resolved]
  - Injection site discolouration [Not Recovered/Not Resolved]
  - Injection site mass [Not Recovered/Not Resolved]
  - Injection site discomfort [Not Recovered/Not Resolved]
  - Urticaria [Recovered/Resolved]
  - Injection site rash [Not Recovered/Not Resolved]
  - Injection site pain [Not Recovered/Not Resolved]

NARRATIVE: CASE EVENT DATE: 20190130
